FAERS Safety Report 15832753 (Version 1)
Quarter: 2018Q4

REPORT INFORMATION
  Report Type: Spontaneous
  Country: US (occurrence: US)
  Receive Date: 20181220
  Receipt Date: 20181220
  Transmission Date: 20190205
  Serious: Yes (Hospitalization)
  Sender: FDA-Public Use
  Company Number: None

PATIENT
  Age: 78 Year
  Weight: 54.9 kg

DRUGS (3)
  1. IPILIMUMAB [Suspect]
     Active Substance: IPILIMUMAB
     Route: 042
     Dates: start: 20181108
  2. BEVACIZUMAB. [Suspect]
     Active Substance: BEVACIZUMAB
  3. NIVOLUMAB [Suspect]
     Active Substance: NIVOLUMAB
     Indication: GLIOBLASTOMA MULTIFORME
     Route: 042
     Dates: start: 20181108

REACTIONS (5)
  - Cardiac disorder [None]
  - Troponin increased [None]
  - Hypoglycaemia [None]
  - Fall [None]
  - Anxiety [None]

NARRATIVE: CASE EVENT DATE: 20181210
